FAERS Safety Report 8570924-2 (Version None)
Quarter: 2012Q3

REPORT INFORMATION
  Report Type: 
  Country: None (occurrence: None)
  Receive Date: 20120806
  Receipt Date: 20120725
  Transmission Date: 20120928
  Serious: No
  Sender: FDA-Public Use
  Company Number: US-BIOGENIDEC-2012BI027739

PATIENT
  Sex: Male

DRUGS (2)
  1. TYSABRI [Suspect]
     Indication: MULTIPLE SCLEROSIS
     Route: 042
     Dates: start: 20090818, end: 20101025
  2. TYSABRI [Suspect]
     Route: 042
     Dates: start: 20110816

REACTIONS (2)
  - POOR PERSONAL HYGIENE [None]
  - URINARY INCONTINENCE [None]
